FAERS Safety Report 5935651-6 (Version None)
Quarter: 2008Q4

REPORT INFORMATION
  Report Type: 
  Country: None (occurrence: None)
  Receive Date: 20081030
  Receipt Date: 20081024
  Transmission Date: 20090506
  Serious: Yes (Death)
  Sender: FDA-Public Use
  Company Number: CA-NOVOPROD-280644

PATIENT
  Sex: Female

DRUGS (1)
  1. NIASTASE [Suspect]
     Indication: DRUG USE FOR UNKNOWN INDICATION
     Dosage: 2.4 MG, UNK
     Route: 042

REACTIONS (1)
  - ISCHAEMIC STROKE [None]
